FAERS Safety Report 9776126 (Version 1)
Quarter: 2013Q4

REPORT INFORMATION
  Report Type: Spontaneous
  Country: IT (occurrence: IT)
  Receive Date: 20131220
  Receipt Date: 20131220
  Transmission Date: 20140711
  Serious: Yes (Hospitalization)
  Sender: FDA-Public Use
  Company Number: IT-WATSON-2013-22904

PATIENT
  Age: 41 Year
  Sex: Female

DRUGS (2)
  1. LORAZEPAM [Suspect]
     Indication: INTENTIONAL SELF-INJURY
     Dosage: 10 ML, SINGLE
     Route: 048
     Dates: start: 20130822, end: 20130822
  2. TAVOR /00273201/ [Suspect]
     Indication: INTENTIONAL SELF-INJURY
     Dosage: 20 DF, SINGLE
     Route: 048
     Dates: start: 20130822, end: 20130822

REACTIONS (3)
  - Intentional self-injury [Unknown]
  - Confusional state [Unknown]
  - Drug abuse [Unknown]
